FAERS Safety Report 7978094-6 (Version None)
Quarter: 2011Q4

REPORT INFORMATION
  Report Type: 
  Country: None (occurrence: None)
  Receive Date: 20111201
  Receipt Date: 20111116
  Transmission Date: 20120403
  Serious: Yes (Other)
  Sender: FDA-Public Use
  Company Number: 2011SP054014

PATIENT
  Age: 54 Year
  Sex: Female

DRUGS (1)
  1. TEMODAL [Suspect]
     Indication: GLIOBLASTOMA
     Dosage: ;PO
     Route: 048

REACTIONS (3)
  - SKIN OEDEMA [None]
  - RASH PAPULAR [None]
  - LYMPHOCYTE STIMULATION TEST POSITIVE [None]
